FAERS Safety Report 10063789 (Version 1)
Quarter: 2014Q2

REPORT INFORMATION
  Report Type: Spontaneous
  Country: US (occurrence: US)
  Receive Date: 20140408
  Receipt Date: 20140408
  Transmission Date: 20141212
  Serious: No
  Sender: FDA-Public Use
  Company Number: US-009507513-1403USA013982

PATIENT
  Sex: Female

DRUGS (1)
  1. NASONEX [Suspect]
     Dosage: UNK UNK, ONCE
     Route: 045
     Dates: start: 201310, end: 201310

REACTIONS (2)
  - Throat tightness [Recovering/Resolving]
  - Rash generalised [Recovering/Resolving]
